FAERS Safety Report 4378924-3 (Version None)
Quarter: 2004Q2

REPORT INFORMATION
  Report Type: 
  Country: None (occurrence: None)
  Receive Date: 20040601
  Receipt Date: 20040202
  Transmission Date: 20050107
  Serious: No
  Sender: FDA-Public Use
  Company Number: WAES 0402USA00152

PATIENT
  Age: 78 Year
  Sex: Female

DRUGS (3)
  1. ZETIA [Suspect]
     Indication: BLOOD CHOLESTEROL INCREASED
     Dosage: 10 MG DAILY PO
     Route: 048
     Dates: start: 20031026
  2. ATENOLOL [Concomitant]
  3. DIURETIC [Concomitant]

REACTIONS (3)
  - DISCOMFORT [None]
  - MALAISE [None]
  - MUSCLE FATIGUE [None]
